FAERS Safety Report 7681291-0 (Version None)
Quarter: 2011Q3

REPORT INFORMATION
  Report Type: 
  Country: None (occurrence: None)
  Receive Date: 20110809
  Receipt Date: 20110725
  Transmission Date: 20111222
  Serious: Yes (Hospitalization, Other)
  Sender: FDA-Public Use
  Company Number: 2010SP056522

PATIENT
  Age: 27 Year
  Sex: Female
  Weight: 88.4514 kg

DRUGS (2)
  1. NUVARING [Suspect]
     Indication: OVARIAN CYST
     Dates: start: 20050101, end: 20050301
  2. NUVARING [Suspect]
     Indication: CONTRACEPTION
     Dates: start: 20050101, end: 20050301

REACTIONS (24)
  - HEADACHE [None]
  - ARTHRALGIA [None]
  - VOMITING [None]
  - VARICOSE VEIN [None]
  - TRANSVERSE SINUS THROMBOSIS [None]
  - CEREBRAL VENOUS THROMBOSIS [None]
  - EMOTIONAL DISORDER [None]
  - DEEP VEIN THROMBOSIS [None]
  - BENIGN INTRACRANIAL HYPERTENSION [None]
  - KETONURIA [None]
  - NAUSEA [None]
  - PROTEIN C INCREASED [None]
  - ANGINA PECTORIS [None]
  - MENTAL DISORDER [None]
  - INFLUENZA [None]
  - SUBARACHNOID HAEMORRHAGE [None]
  - HEART RATE IRREGULAR [None]
  - CEREBRAL INFARCTION [None]
  - DIZZINESS [None]
  - INTERVERTEBRAL DISC PROTRUSION [None]
  - CEREBELLAR HAEMORRHAGE [None]
  - MULTIPLE INJURIES [None]
  - HYPERCOAGULATION [None]
  - CEREBROVASCULAR ACCIDENT [None]
